FAERS Safety Report 8234098-X (Version None)
Quarter: 2012Q1

REPORT INFORMATION
  Report Type: 
  Country: None (occurrence: None)
  Receive Date: 20120326
  Receipt Date: 20120326
  Transmission Date: 20120608
  Serious: Yes (Other)
  Sender: FDA-Public Use
  Company Number: None

PATIENT
  Age: 56 Year
  Sex: Female
  Weight: 65.77 kg

DRUGS (1)
  1. DICLOFENAC POTASSIUM [Suspect]
     Indication: MIGRAINE
     Dosage: 50.0 MG
     Route: 048
     Dates: start: 20040101, end: 20120229

REACTIONS (1)
  - HEPATIC ENZYME INCREASED [None]
